FAERS Safety Report 24990238 (Version 2)
Quarter: 2025Q1

REPORT INFORMATION
  Report Type: Report from Study
  Country: US (occurrence: US)
  Receive Date: 20250220
  Receipt Date: 20250311
  Transmission Date: 20250409
  Serious: Yes (Hospitalization)
  Sender: EISAI
  Company Number: US-Eisai-EC-2025-184326

PATIENT
  Age: 60 Year
  Sex: Female

DRUGS (3)
  1. LENVIMA [Suspect]
     Active Substance: LENVATINIB
     Indication: Endometrial cancer
     Dosage: MISSED 5 DAYS
     Dates: start: 202306, end: 202309
  2. LENVIMA [Suspect]
     Active Substance: LENVATINIB
     Dosage: MISSED DOSES
     Dates: start: 2023, end: 202501
  3. LENVIMA [Suspect]
     Active Substance: LENVATINIB
     Dosage: MISSED DOSES
     Dates: start: 202502

REACTIONS (2)
  - Blood pressure increased [Not Recovered/Not Resolved]
  - Blood pressure diastolic increased [Not Recovered/Not Resolved]

NARRATIVE: CASE EVENT DATE: 20230601
